FAERS Safety Report 5427717-4 (Version None)
Quarter: 2007Q3

REPORT INFORMATION
  Report Type: 
  Country: None (occurrence: None)
  Receive Date: 20070828
  Receipt Date: 20070823
  Transmission Date: 20080115
  Serious: Yes (Death)
  Sender: FDA-Public Use
  Company Number: PHEH2007US07979

PATIENT
  Age: 71 Year
  Sex: Male
  Weight: 82 kg

DRUGS (1)
  1. EXJADE [Suspect]
     Indication: IRON OVERLOAD
     Dosage: 2000 UNK, QD
     Route: 048
     Dates: start: 20060825, end: 20070523

REACTIONS (5)
  - ACUTE LEUKAEMIA [None]
  - FALL [None]
  - HAEMORRHAGE INTRACRANIAL [None]
  - INJURY [None]
  - THROMBOCYTOPENIA [None]
